FAERS Safety Report 10364361 (Version 1)
Quarter: 2014Q3

REPORT INFORMATION
  Report Type: Not Available
  Country: US (occurrence: US)
  Receive Date: 20140806
  Receipt Date: 20140806
  Transmission Date: 20150326
  Serious: No
  Sender: FDA-Public Use
  Company Number: US-LUPIN PHARMACEUTICALS INC.-E2B_00001149

PATIENT
  Sex: Male

DRUGS (3)
  1. RIFAMPIN. [Concomitant]
     Active Substance: RIFAMPIN
     Indication: LEPROSY
  2. ETHAMBUTOL HCL [Suspect]
     Active Substance: ETHAMBUTOL HYDROCHLORIDE
     Indication: LEPROSY
  3. RIFAMPIN. [Concomitant]
     Active Substance: RIFAMPIN
     Indication: LEPROSY

REACTIONS (3)
  - Myalgia [Not Recovered/Not Resolved]
  - Arthralgia [Not Recovered/Not Resolved]
  - Pyrexia [Not Recovered/Not Resolved]
